FAERS Safety Report 24169936 (Version 2)
Quarter: 2024Q3

REPORT INFORMATION
  Report Type: Spontaneous
  Country: US (occurrence: US)
  Receive Date: 20240803
  Receipt Date: 20240909
  Transmission Date: 20241017
  Serious: No
  Sender: ROCHE
  Company Number: US-ROCHE-10000040116

PATIENT
  Age: 28 Year
  Sex: Female
  Weight: 61.23 kg

DRUGS (4)
  1. XOLAIR [Suspect]
     Active Substance: OMALIZUMAB
     Indication: Urticaria
     Dosage: STRENGTH: 300 MG/ ML.
     Route: 058
     Dates: start: 20240725
  2. XOLAIR [Suspect]
     Active Substance: OMALIZUMAB
  3. CHLORHEXIDINE [Suspect]
     Active Substance: CHLORHEXIDINE
     Indication: Product used for unknown indication
     Route: 065
  4. UBRELVY [Concomitant]
     Active Substance: UBROGEPANT

REACTIONS (6)
  - Allergy to chemicals [Not Recovered/Not Resolved]
  - Accidental exposure to product [Unknown]
  - Product dose omission issue [Unknown]
  - Product complaint [Unknown]
  - Needle issue [Unknown]
  - Chemical burn [Unknown]

NARRATIVE: CASE EVENT DATE: 20240725
